FAERS Safety Report 16427382 (Version 2)
Quarter: 2019Q2

REPORT INFORMATION
  Report Type: Spontaneous
  Country: US (occurrence: US)
  Receive Date: 20190613
  Receipt Date: 20190613
  Transmission Date: 20190711
  Serious: No
  Sender: FDA-Public Use
  Company Number: US-BAYER-2019-112205

PATIENT
  Sex: Female

DRUGS (1)
  1. LOTRIMIN [Suspect]
     Active Substance: CLOTRIMAZOLE
     Route: 065

REACTIONS (1)
  - Accidental exposure to product by child [Unknown]
